FAERS Safety Report 6707625-9 (Version None)
Quarter: 2010Q2

REPORT INFORMATION
  Report Type: 
  Country: None (occurrence: None)
  Receive Date: 20100503
  Receipt Date: 20090514
  Transmission Date: 20101027
  Serious: No
  Sender: FDA-Public Use
  Company Number: US-ASTRAZENECA-2009UW12506

PATIENT
  Age: 66 Year
  Sex: Male
  Weight: 47.2 kg

DRUGS (5)
  1. NEXIUM [Suspect]
     Indication: GASTROOESOPHAGEAL REFLUX DISEASE
     Route: 048
  2. PLAVIX [Concomitant]
  3. ASPIRIN [Concomitant]
  4. THEOPHYLLINE [Concomitant]
  5. XANAX [Concomitant]

REACTIONS (2)
  - DRUG INEFFECTIVE [None]
  - RENAL ATROPHY [None]
